FAERS Safety Report 10332992 (Version 2)
Quarter: 2014Q3

REPORT INFORMATION
  Report Type: Spontaneous
  Country: GB (occurrence: GB)
  Receive Date: 20140722
  Receipt Date: 20140731
  Transmission Date: 20150326
  Serious: Yes (Other)
  Sender: FDA-Public Use
  Company Number: CHPA2014GB009645

PATIENT
  Sex: Male

DRUGS (1)
  1. BOOTS NICASSIST [Suspect]
     Active Substance: NICOTINE BETADEX
     Dosage: UNK
     Dates: start: 2011

REACTIONS (2)
  - Dependence [Unknown]
  - Dental caries [Unknown]
